FAERS Safety Report 6371489-6 (Version None)
Quarter: 2009Q3

REPORT INFORMATION
  Report Type: 
  Country: None (occurrence: None)
  Receive Date: 20090923
  Receipt Date: 20071016
  Transmission Date: 20100115
  Serious: No
  Sender: FDA-Public Use
  Company Number: US-ASTRAZENECA-2007UW08827

PATIENT
  Age: 42 Year
  Sex: Male
  Weight: 122.5 kg

DRUGS (14)
  1. SEROQUEL [Suspect]
     Route: 048
     Dates: start: 20000101
  2. SEROQUEL [Suspect]
     Dosage: 25-400 MG
     Route: 048
     Dates: start: 20000907
  3. THORAZINE [Concomitant]
  4. TRILAFON [Concomitant]
  5. RISPERDAL [Concomitant]
     Dates: start: 19950101, end: 19960101
  6. SINGULAIR [Concomitant]
  7. TRICOR [Concomitant]
  8. COMBIVENT [Concomitant]
  9. DEPAKOTE [Concomitant]
  10. LUVOX [Concomitant]
  11. REMERON [Concomitant]
  12. ZOLOFT [Concomitant]
  13. TRAZODONE [Concomitant]
  14. ZYPREXA [Concomitant]

REACTIONS (9)
  - ABDOMINAL HERNIA [None]
  - ALCOHOL ABUSE [None]
  - DIABETES MELLITUS [None]
  - LIPOMA [None]
  - OBESITY [None]
  - PSYCHOTIC DISORDER [None]
  - SCHIZOPHRENIA [None]
  - TOBACCO ABUSE [None]
  - UMBILICAL HERNIA [None]
